FAERS Safety Report 7264673-0 (Version None)
Quarter: 2011Q1

REPORT INFORMATION
  Report Type: 
  Country: None (occurrence: None)
  Receive Date: 20110131
  Receipt Date: 20110126
  Transmission Date: 20110831
  Serious: No
  Sender: FDA-Public Use
  Company Number: US-PFIZER INC-2011019435

PATIENT
  Sex: Male
  Weight: 138 kg

DRUGS (2)
  1. VALTREX [Concomitant]
     Dosage: UNK
  2. CHANTIX [Suspect]
     Indication: SMOKING CESSATION THERAPY
     Dosage: 0.5 TABLETS
     Route: 048

REACTIONS (1)
  - DRUG INEFFECTIVE [None]
